FAERS Safety Report 17404525 (Version 1)
Quarter: 2020Q1

REPORT INFORMATION
  Report Type: Spontaneous
  Country: US (occurrence: US)
  Receive Date: 20200211
  Receipt Date: 20200211
  Transmission Date: 20200409
  Serious: Yes (Other)
  Sender: FDA-Public Use
  Company Number: US-HORIZON-PEN-0072-2020

PATIENT
  Age: 66 Year
  Sex: Male

DRUGS (1)
  1. PENNSAID [Suspect]
     Active Substance: DICLOFENAC SODIUM
     Indication: ARTHRALGIA
     Dosage: TWICE DAILY. DOESN^T USE ALL THE TIME

REACTIONS (6)
  - Off label use [Unknown]
  - Product dose omission [Unknown]
  - Intentional product use issue [Unknown]
  - Nerve injury [Unknown]
  - Therapeutic product effect decreased [Unknown]
  - Muscle tightness [Unknown]
